FAERS Safety Report 8835163 (Version 2)
Quarter: 2012Q4

REPORT INFORMATION
  Report Type: 
  Country: US (occurrence: US)
  Receive Date: 20121011
  Receipt Date: 20121109
  Transmission Date: 20130627
  Serious: Yes (Other)
  Sender: FDA-Public Use
  Company Number: US-PFIZER INC-2012251319

PATIENT
  Age: 58 Year
  Sex: Male

DRUGS (4)
  1. SERTRALINE HCL [Suspect]
     Indication: DEPRESSION
     Dosage: 50 mg, daily
     Route: 048
     Dates: start: 20121002, end: 20121014
  2. SERTRALINE HCL [Suspect]
     Dosage: 50 mg, 1x/day
     Route: 048
  3. ACIPHEX [Concomitant]
     Indication: REFLUX GASTRITIS
     Dosage: 20 mg, once daily
  4. ZOLPIDEM [Concomitant]
     Indication: SLEEP DISORDER NOS
     Dosage: 5 mg, 1x/day at bed time

REACTIONS (1)
  - Drug ineffective [Unknown]
